FAERS Safety Report 18616934 (Version 1)
Quarter: 2020Q4

REPORT INFORMATION
  Report Type: Spontaneous
  Country: US (occurrence: US)
  Receive Date: 20201215
  Receipt Date: 20201215
  Transmission Date: 20210114
  Serious: No
  Sender: FDA-Public Use
  Company Number: NVSC2020US330909

PATIENT
  Sex: Male

DRUGS (1)
  1. MEKINIST [Suspect]
     Active Substance: TRAMETINIB DIMETHYL SULFOXIDE
     Indication: ILLNESS
     Dosage: 0.5 MG, QD
     Route: 048
     Dates: start: 20201124

REACTIONS (2)
  - Rash [Unknown]
  - Product use in unapproved indication [Unknown]
